FAERS Safety Report 8041065-8 (Version None)
Quarter: 2012Q1

REPORT INFORMATION
  Report Type: 
  Country: None (occurrence: None)
  Receive Date: 20120109
  Receipt Date: 20111227
  Transmission Date: 20120608
  Serious: Yes (Hospitalization, Other)
  Sender: FDA-Public Use
  Company Number: 2011P1010230

PATIENT
  Age: 71 Year
  Sex: Female
  Weight: 54.6 kg

DRUGS (12)
  1. ADALAT [Concomitant]
  2. AMLODIPINE [Concomitant]
  3. FAMOTIDINE [Suspect]
     Dosage: 20 MG; QD; PO
     Route: 048
     Dates: start: 20110926, end: 20111006
  4. DIOVAN [Concomitant]
  5. KALIMATE [Concomitant]
  6. PURSENNID [Concomitant]
  7. PRAVASTATIN SODIUM [Concomitant]
  8. EPADEL [Concomitant]
  9. LASIX [Concomitant]
  10. ALLOPURINOL [Concomitant]
  11. UNSPECIFIED RENAL EXCRETION DRUGS (NO PREF. NAME) [Suspect]
  12. FERROUS CITRATE [Concomitant]

REACTIONS (8)
  - HEPATIC ENCEPHALOPATHY [None]
  - RENAL TUBULAR DISORDER [None]
  - RENAL FAILURE CHRONIC [None]
  - CONDITION AGGRAVATED [None]
  - EOSINOPHIL COUNT INCREASED [None]
  - HAEMODIALYSIS [None]
  - HEPATIC FAILURE [None]
  - DRUG LEVEL INCREASED [None]
